FAERS Safety Report 5728185-5 (Version None)
Quarter: 2008Q2

REPORT INFORMATION
  Report Type: 
  Country: None (occurrence: None)
  Receive Date: 20080501
  Receipt Date: 20080423
  Transmission Date: 20081010
  Serious: Yes (Other)
  Sender: FDA-Public Use
  Company Number: 2008010293

PATIENT

DRUGS (3)
  1. ZYRTEC [Suspect]
     Indication: HYPERSENSITIVITY
     Dosage: 1 PILL ONCE DAILY, ORAL
     Route: 048
     Dates: start: 20080414, end: 20080417
  2. RHINOCORT [Concomitant]
  3. ZYRTEC [Suspect]

REACTIONS (4)
  - CONVULSION [None]
  - FALL [None]
  - HEART RATE INCREASED [None]
  - LIMB INJURY [None]
